FAERS Safety Report 4498646-8 (Version None)
Quarter: 2004Q4

REPORT INFORMATION
  Report Type: 
  Country: None (occurrence: None)
  Receive Date: 20041108
  Receipt Date: 20041028
  Transmission Date: 20050328
  Serious: Yes (Life-Threatening, Hospitalization)
  Sender: FDA-Public Use
  Company Number: 2004241782US

PATIENT
  Age: 2 Year
  Sex: Male
  Weight: 7.5 kg

DRUGS (1)
  1. GENOTROPIN [Suspect]
     Indication: HYPOPITUITARISM
     Dosage: 2.1 MG, WEEKLY/7 INJECT. WEEK
     Dates: start: 20030510

REACTIONS (1)
  - RESPIRATORY ARREST [None]
